FAERS Safety Report 10668517 (Version 5)
Quarter: 2015Q3

REPORT INFORMATION
  Report Type: Report from Study
  Country: US (occurrence: US)
  Receive Date: 20141222
  Receipt Date: 20150814
  Transmission Date: 20151125
  Serious: Yes (Hospitalization, Other)
  Sender: FDA-Public Use
  Company Number: US-SA-2014SA150339

PATIENT
  Age: 66 Year
  Sex: Male

DRUGS (2)
  1. NAMENDA [Concomitant]
     Active Substance: MEMANTINE HYDROCHLORIDE
  2. AUBAGIO [Suspect]
     Active Substance: TERIFLUNOMIDE
     Indication: MULTIPLE SCLEROSIS
     Route: 048
     Dates: start: 20141014, end: 20150806

REACTIONS (12)
  - Wheezing [Unknown]
  - Movement disorder [Unknown]
  - Gait disturbance [Unknown]
  - Drug ineffective [Unknown]
  - Walking aid user [Unknown]
  - Asthenia [Unknown]
  - Fall [Unknown]
  - Activities of daily living impaired [Unknown]
  - Sleep apnoea syndrome [Unknown]
  - Skin abrasion [Unknown]
  - Choking [Unknown]
  - Respiratory arrest [Unknown]

NARRATIVE: CASE EVENT DATE: 201410
